FAERS Safety Report 6128450-6 (Version None)
Quarter: 2009Q1

REPORT INFORMATION
  Report Type: 
  Country: None (occurrence: None)
  Receive Date: 20090323
  Receipt Date: 20090311
  Transmission Date: 20090719
  Serious: Yes (Hospitalization)
  Sender: FDA-Public Use
  Company Number: GB-PFIZER INC-2009184042

PATIENT

DRUGS (10)
  1. CHAMPIX [Suspect]
     Indication: SMOKING CESSATION THERAPY
     Dosage: 1 MG, 2X/DAY
     Route: 048
     Dates: start: 20081201, end: 20090201
  2. CITALOPRAM [Concomitant]
     Dosage: 40 MG, 1X/DAY
     Route: 048
  3. CO-DYDRAMOL [Concomitant]
     Dosage: UNKNOWN
  4. HYDROCORTISONE [Concomitant]
     Indication: RASH
     Dosage: UNKNOWN
  5. IBUPROFEN [Concomitant]
     Dosage: UNKNOWN
  6. MAALOX [Concomitant]
     Dosage: UNKNOWN
  7. OMEPRAZOLE [Concomitant]
     Dosage: 40 MG, 1X/DAY
     Route: 048
  8. THIAMINE [Concomitant]
     Dosage: 100 MG, 3X/DAY
     Route: 048
  9. TRAMADOL [Concomitant]
     Dosage: 50 MG, 4X/DAY
  10. VITAMIN B COMPLEX CAP [Concomitant]
     Dosage: UNKNOWN
     Route: 048

REACTIONS (2)
  - OVERDOSE [None]
  - SUICIDAL BEHAVIOUR [None]
